FAERS Safety Report 9286346 (Version 1)
Quarter: 2013Q2

REPORT INFORMATION
  Report Type: Spontaneous
  Country: JP (occurrence: JP)
  Receive Date: 20130513
  Receipt Date: 20130513
  Transmission Date: 20140414
  Serious: Yes (Hospitalization)
  Sender: FDA-Public Use
  Company Number: JP-PFIZER INC-2013143347

PATIENT
  Age: 8 Year
  Sex: Male

DRUGS (3)
  1. HYDROCORTISONE SODIUM SUCCINATE [Suspect]
     Indication: ASTHMA
     Dosage: 100 MG, UNK
     Route: 042
     Dates: start: 201110
  2. SALBUTAMOL [Concomitant]
     Dosage: UNK
     Route: 055
     Dates: start: 201110
  3. AMINOPHYLLINE [Concomitant]
     Dosage: CONTINUOUS
     Route: 041
     Dates: start: 201110

REACTIONS (2)
  - Wheezing [Recovering/Resolving]
  - Cough [Recovering/Resolving]
